FAERS Safety Report 5977858-8 (Version None)
Quarter: 2008Q4

REPORT INFORMATION
  Report Type: 
  Country: None (occurrence: None)
  Receive Date: 20081203
  Receipt Date: 20081127
  Transmission Date: 20090506
  Serious: Yes (Other)
  Sender: FDA-Public Use
  Company Number: GB-JNJFOC-20081200003

PATIENT
  Sex: Female

DRUGS (1)
  1. PROPULSID [Suspect]
     Indication: GASTROINTESTINAL MOTILITY DISORDER
     Route: 065

REACTIONS (3)
  - ANXIETY [None]
  - NERVOUS SYSTEM DISORDER [None]
  - TOURETTE'S DISORDER [None]
